FAERS Safety Report 7333224-4 (Version None)
Quarter: 2011Q1

REPORT INFORMATION
  Report Type: 
  Country: None (occurrence: None)
  Receive Date: 20110304
  Receipt Date: 20110228
  Transmission Date: 20110831
  Serious: Yes (Death)
  Sender: FDA-Public Use
  Company Number: US-AMGEN-USASP2011011747

PATIENT
  Age: 67 Year
  Sex: Female

DRUGS (5)
  1. DANAZOL [Concomitant]
     Dosage: UNK
     Dates: start: 20091027
  2. NPLATE [Suspect]
     Indication: IDIOPATHIC THROMBOCYTOPENIC PURPURA
     Dates: start: 20091016
  3. CORTICOSTEROIDS [Concomitant]
     Dosage: UNK
     Dates: start: 20091012, end: 20091018
  4. RITUXIMAB [Concomitant]
     Dosage: UNK
     Dates: start: 20091018, end: 20091030
  5. IMMUNOGLOBULINS [Concomitant]
     Dosage: UNK
     Dates: start: 20091012, end: 20091015

REACTIONS (1)
  - DEATH [None]
